FAERS Safety Report 9580182 (Version 1)
Quarter: 2013Q3

REPORT INFORMATION
  Report Type: Spontaneous
  Country: US (occurrence: None)
  Receive Date: 20130916
  Receipt Date: 20130916
  Transmission Date: 20140515
  Serious: Yes (Other)
  Sender: FDA-Public Use
  Company Number: JPI-P-031435

PATIENT
  Age: 34 Year
  Sex: Female
  Weight: 63.5 kg

DRUGS (5)
  1. XYREM [Suspect]
     Indication: CATAPLEXY
     Route: 048
     Dates: start: 20130406
  2. RISPERDAL (RISPERIDONE) [Suspect]
     Indication: PSYCHOTIC DISORDER
     Dates: start: 201301
  3. DULOXETINE [Concomitant]
  4. DEXTROAMPHETAMINE [Concomitant]
  5. BUPRENORPHINE [Concomitant]

REACTIONS (12)
  - Hypotension [None]
  - Dizziness [None]
  - Feeling abnormal [None]
  - Lethargy [None]
  - Abdominal discomfort [None]
  - Confusional state [None]
  - Fatigue [None]
  - Condition aggravated [None]
  - Headache [None]
  - Nausea [None]
  - Decreased appetite [None]
  - Enuresis [None]
